FAERS Safety Report 14355030 (Version 1)
Quarter: 2018Q1

REPORT INFORMATION
  Report Type: Spontaneous
  Country: CN (occurrence: CN)
  Receive Date: 20180105
  Receipt Date: 20180105
  Transmission Date: 20180509
  Serious: Yes (Other)
  Sender: FDA-Public Use
  Company Number: CN-PFIZER INC-2018004032

PATIENT
  Age: 80 Year
  Sex: Male
  Weight: 60 kg

DRUGS (3)
  1. BIAPENEM [Concomitant]
     Active Substance: BIAPENEM
     Indication: INFECTION
  2. SODIUM CHLORIDE. [Concomitant]
     Active Substance: SODIUM CHLORIDE
     Indication: VEHICLE SOLUTION USE
     Dosage: 100 ML, 2X/DAY
     Route: 041
     Dates: start: 20170825, end: 20170831
  3. DIFLUCAN [Suspect]
     Active Substance: FLUCONAZOLE
     Indication: LUNG INFECTION
     Dosage: 0.2 G, 2X/DAY
     Route: 041
     Dates: start: 20170825, end: 20170831

REACTIONS (1)
  - White blood cell count decreased [Not Recovered/Not Resolved]

NARRATIVE: CASE EVENT DATE: 20170831
